FAERS Safety Report 7070762-6 (Version None)
Quarter: 2010Q4

REPORT INFORMATION
  Report Type: 
  Country: None (occurrence: None)
  Receive Date: 20101029
  Receipt Date: 20101015
  Transmission Date: 20110411
  Serious: Yes (Hospitalization)
  Sender: FDA-Public Use
  Company Number: US-BAYER-201010772NA

PATIENT
  Age: 27 Year
  Sex: Female
  Weight: 60 kg

DRUGS (4)
  1. YAZ [Suspect]
     Indication: CONTRACEPTION
     Route: 048
     Dates: start: 20060201, end: 20090701
  2. YASMIN [Suspect]
     Indication: PRODUCT USED FOR UNKNOWN INDICATION
     Route: 048
     Dates: start: 20060201, end: 20090701
  3. TRAMADOL HCL [Concomitant]
     Dates: start: 20090720
  4. MAGNESIUM CITRATE [Concomitant]
     Dates: start: 20090720

REACTIONS (7)
  - ABDOMINAL PAIN UPPER [None]
  - CHOLECYSTITIS CHRONIC [None]
  - CHOLELITHIASIS [None]
  - COSTOVERTEBRAL ANGLE TENDERNESS [None]
  - GALLBLADDER CHOLESTEROLOSIS [None]
  - NAUSEA [None]
  - VOMITING [None]
